FAERS Safety Report 17763184 (Version 2)
Quarter: 2020Q2

REPORT INFORMATION
  Report Type: Spontaneous
  Country: BR (occurrence: MX)
  Receive Date: 20200508
  Receipt Date: 20200603
  Transmission Date: 20200714
  Serious: Yes (Other)
  Sender: FDA-Public Use
  Company Number: MX-BIOMARINAP-MX-2020-130051

PATIENT
  Age: 8 Year
  Sex: Male
  Weight: 14.8 kg

DRUGS (2)
  1. VIMIZIM [Suspect]
     Active Substance: ELOSULFASE ALFA
     Dosage: 4 MILLIGRAM/KILOGRAM, QOW
     Route: 042
     Dates: start: 20200324
  2. VIMIZIM [Suspect]
     Active Substance: ELOSULFASE ALFA
     Indication: MUCOPOLYSACCHARIDOSIS IV
     Dosage: 2 MILLIGRAM/KILOGRAM, QW
     Route: 042
     Dates: start: 20190910

REACTIONS (5)
  - Tonsillectomy [Recovered/Resolved]
  - Palatoplasty [Recovered/Resolved]
  - Infection [Not Recovered/Not Resolved]
  - Gait disturbance [Not Recovered/Not Resolved]
  - Adenoidectomy [Recovered/Resolved]

NARRATIVE: CASE EVENT DATE: 20191121
